FAERS Safety Report 8042430-5 (Version None)
Quarter: 2012Q1

REPORT INFORMATION
  Report Type: 
  Country: None (occurrence: None)
  Receive Date: 20120112
  Receipt Date: 20120105
  Transmission Date: 20120608
  Serious: Yes (Hospitalization)
  Sender: FDA-Public Use
  Company Number: ES-ABBOTT-12P-144-0889534-00

PATIENT
  Age: 37 Year
  Sex: Female

DRUGS (4)
  1. MENOTROPINS [Interacting]
     Indication: IN VITRO FERTILISATION
     Dates: start: 20110324
  2. LEUPROLIDE ACETATE [Suspect]
     Indication: IN VITRO FERTILISATION
     Dosage: 1MG/0.2ML
     Route: 058
     Dates: start: 20110301
  3. CHORIONIC GONADOTROPIN [Interacting]
     Indication: IN VITRO FERTILISATION
     Dosage: ONLY ONE DOSE
     Route: 058
     Dates: start: 20110401, end: 20110401
  4. PUREGON [Interacting]
     Indication: IN VITRO FERTILISATION
     Route: 058
     Dates: start: 20110401, end: 20110404

REACTIONS (1)
  - OVARIAN HYPERSTIMULATION SYNDROME [None]
